FAERS Safety Report 6487602-6 (Version None)
Quarter: 2009Q4

REPORT INFORMATION
  Report Type: 
  Country: None (occurrence: None)
  Receive Date: 20091210
  Receipt Date: 20091201
  Transmission Date: 20100525
  Serious: Yes (Hospitalization)
  Sender: FDA-Public Use
  Company Number: NL-MEDIMMUNE-MEDI-0009790

PATIENT
  Sex: Male

DRUGS (2)
  1. SYNAGIS [Suspect]
     Route: 030
     Dates: start: 20090909, end: 20091103
  2. SYNAGIS [Suspect]
     Route: 030
     Dates: start: 20091201, end: 20091201

REACTIONS (1)
  - H1N1 INFLUENZA [None]
